FAERS Safety Report 19740848 (Version 2)
Quarter: 2021Q4

REPORT INFORMATION
  Report Type: Report from Study
  Country: FR (occurrence: FR)
  Receive Date: 20210824
  Receipt Date: 20211006
  Transmission Date: 20220304
  Serious: Yes (Death)
  Sender: FDA-Public Use
  Company Number: FR-VER-202100103

PATIENT
  Age: 80 Year

DRUGS (3)
  1. TRIPTORELIN [Suspect]
     Active Substance: TRIPTORELIN
     Indication: Atrial fibrillation
     Route: 058
     Dates: start: 20210105
  2. TRIPTORELIN [Suspect]
     Active Substance: TRIPTORELIN
     Indication: Off label use
     Route: 058
     Dates: start: 20210105
  3. PREVISCAN [Concomitant]
     Route: 065

REACTIONS (3)
  - Off label use [Unknown]
  - Asthenia [Unknown]
  - Prostate cancer metastatic [Fatal]

NARRATIVE: CASE EVENT DATE: 20210319
